FAERS Safety Report 19050801 (Version 1)
Quarter: 2021Q1

REPORT INFORMATION
  Report Type: Other
  Country: FR (occurrence: FR)
  Receive Date: 20210324
  Receipt Date: 20210324
  Transmission Date: 20210420
  Serious: Yes (Hospitalization)
  Sender: FDA-Public Use
  Company Number: FR-CADILA HEALTHCARE LIMITED-FR-ZYDUS-063367

PATIENT

DRUGS (6)
  1. NOMEGESTROL [Suspect]
     Active Substance: NOMEGESTROL
     Indication: PRODUCT ADMINISTRATION ERROR
     Dosage: 5 MILLIGRAM
     Route: 048
     Dates: start: 20210127, end: 20210127
  2. ARTANE [Suspect]
     Active Substance: TRIHEXYPHENIDYL HYDROCHLORIDE
     Indication: PRODUCT ADMINISTRATION ERROR
     Dosage: 5 MILLIGRAM
     Route: 048
     Dates: start: 20210127, end: 20210127
  3. ATORVASTATIN [Suspect]
     Active Substance: ATORVASTATIN
     Indication: PRODUCT ADMINISTRATION ERROR
     Dosage: 10 MILLIGRAM
     Route: 048
     Dates: start: 20210127, end: 20210127
  4. MONTELUKAST [Suspect]
     Active Substance: MONTELUKAST SODIUM
     Indication: PRODUCT ADMINISTRATION ERROR
     Dosage: 10 MILLIGRAM
     Route: 048
     Dates: start: 20210127, end: 20210127
  5. DIPIPERON [Suspect]
     Active Substance: PIPAMPERONE
     Indication: PRODUCT ADMINISTRATION ERROR
     Dosage: 40 MILLIGRAM
     Route: 048
     Dates: start: 20210127, end: 20210127
  6. DESLORATADINE. [Suspect]
     Active Substance: DESLORATADINE
     Indication: PRODUCT ADMINISTRATION ERROR
     Dosage: 5 MILLIGRAM
     Route: 048
     Dates: start: 20210127, end: 20210127

REACTIONS (3)
  - Balance disorder [Recovered/Resolved]
  - Speech disorder [Recovered/Resolved]
  - Somnolence [Recovered/Resolved]

NARRATIVE: CASE EVENT DATE: 20210127
